FAERS Safety Report 19576676 (Version 1)
Quarter: 2021Q3

REPORT INFORMATION
  Report Type: Spontaneous
  Country: US (occurrence: US)
  Receive Date: 20210719
  Receipt Date: 20210719
  Transmission Date: 20211014
  Serious: No
  Sender: FDA-Public Use
  Company Number: None

PATIENT
  Age: 34 Year
  Sex: Male
  Weight: 65.25 kg

DRUGS (1)
  1. NEUTROGENA ULTRA SHEER DRY TOUCH SUNSCREEN BROAD SPECTRUM NOS [Suspect]
     Active Substance: AVOBENZONE\HOMOSALATE\OCTISALATE\OCTOCRYLENE OR AVOBENZONE\HOMOSALATE\OCTISALATE\OCTOCRYLENE\OXYBENZONE
     Indication: PROPHYLAXIS AGAINST SOLAR RADIATION
     Dosage: ?          QUANTITY:1 APPLICATION;?
     Route: 061
     Dates: start: 20210403, end: 20210403

REACTIONS (6)
  - Dermatitis contact [None]
  - Application site rash [None]
  - Recalled product [None]
  - Product contamination chemical [None]
  - Application site pruritus [None]
  - Product contamination [None]

NARRATIVE: CASE EVENT DATE: 20210406
